FAERS Safety Report 25631262 (Version 1)
Quarter: 2025Q3

REPORT INFORMATION
  Report Type: Report from Study
  Country: JP (occurrence: JP)
  Receive Date: 20250801
  Receipt Date: 20250801
  Transmission Date: 20251021
  Serious: Yes (Other)
  Sender: ROCHE
  Company Number: JP-ROCHE-10000351841

PATIENT

DRUGS (9)
  1. RITUXAN [Suspect]
     Active Substance: RITUXIMAB
     Indication: Diffuse large B-cell lymphoma
     Route: 042
  2. THIOTEPA [Concomitant]
     Active Substance: THIOTEPA
  3. BUSULFAN [Concomitant]
     Active Substance: BUSULFAN
  4. RANIMUSTINE [Concomitant]
     Active Substance: RANIMUSTINE
  5. ETOPOSIDE [Concomitant]
     Active Substance: ETOPOSIDE
  6. CYTARABINE [Concomitant]
     Active Substance: CYTARABINE
  7. MELPHALAN [Concomitant]
     Active Substance: MELPHALAN
  8. BENDAMUSTINE HYDROCHLORIDE [Concomitant]
     Active Substance: BENDAMUSTINE HYDROCHLORIDE
  9. CYCLOPHOSPHAMIDE [Concomitant]
     Active Substance: CYCLOPHOSPHAMIDE

REACTIONS (11)
  - Infection [Unknown]
  - Febrile neutropenia [Unknown]
  - Diarrhoea [Unknown]
  - Nausea [Unknown]
  - Haemorrhage [Unknown]
  - Oedema [Unknown]
  - Renal impairment [Unknown]
  - Thrombotic microangiopathy [Unknown]
  - Inappropriate antidiuretic hormone secretion [Unknown]
  - Dysuria [Unknown]
  - Thrombocytopenia [Unknown]
